FAERS Safety Report 4502919-X (Version None)
Quarter: 2004Q4

REPORT INFORMATION
  Report Type: 
  Country: None (occurrence: None)
  Receive Date: 20041117
  Receipt Date: 20041108
  Transmission Date: 20050328
  Serious: Yes (Other)
  Sender: FDA-Public Use
  Company Number: PHFR2004GB04178

PATIENT
  Age: 46 Year
  Sex: Female
  Weight: 59 kg

DRUGS (3)
  1. PAMIDRONATE DISODIUM [Suspect]
     Indication: METASTASES TO BONE
     Dosage: 90MG
     Route: 042
     Dates: start: 20040716, end: 20040716
  2. LETROZOLE [Concomitant]
     Indication: BREAST CANCER
     Dosage: 2.5MG/DAY
     Route: 048
     Dates: start: 20040601
  3. CLODRONATE DISODIUM [Concomitant]
     Dosage: 1600MG/DAY
     Route: 065
     Dates: start: 20040816

REACTIONS (9)
  - ABDOMINAL PAIN [None]
  - EYE DISORDER [None]
  - EYE REDNESS [None]
  - FEELING ABNORMAL [None]
  - HEADACHE [None]
  - HYPERHIDROSIS [None]
  - IRITIS [None]
  - NAUSEA [None]
  - PYREXIA [None]
